FAERS Safety Report 17483029 (Version 1)
Quarter: 2020Q1

REPORT INFORMATION
  Report Type: Spontaneous
  Country: US (occurrence: US)
  Receive Date: 20200228
  Receipt Date: 20200228
  Transmission Date: 20200409
  Serious: No
  Sender: FDA-Public Use
  Company Number: None

PATIENT
  Age: 44 Year
  Sex: Female
  Weight: 67.5 kg

DRUGS (14)
  1. ONDANSETRON 4MG IV [Concomitant]
     Active Substance: ONDANSETRON
     Dates: start: 20190906, end: 20190906
  2. ONDANSETRON 4MG ORAL [Concomitant]
     Dates: start: 20190906, end: 20190908
  3. MELATONIN 3MG TABLET [Concomitant]
     Dates: start: 20190907, end: 20190908
  4. IOHEXOL [Concomitant]
     Active Substance: IOHEXOL
     Dates: start: 20190906, end: 20190906
  5. AZITHROMYCIN 500MG IV [Concomitant]
     Active Substance: AZITHROMYCIN ANHYDROUS
     Dates: start: 20190906, end: 20190906
  6. METRONIDAZOLE 500MG IV [Concomitant]
     Dates: start: 20190906, end: 20190906
  7. ATORVASTATIN 20MG TABLET [Concomitant]
     Dates: start: 20190906, end: 20190908
  8. DONEPEZIL 5MG TABLET [Concomitant]
     Active Substance: DONEPEZIL
     Dates: start: 20190906, end: 20190908
  9. LEVOTHYROXINE 75MCG TABLET [Concomitant]
     Dates: start: 20190907, end: 20190908
  10. FENTANYL 50MCG  IV [Concomitant]
     Dates: start: 20190906, end: 20190906
  11. LEVETIRACETAM. [Suspect]
     Active Substance: LEVETIRACETAM
     Indication: SEIZURE
     Route: 048
     Dates: start: 20190906, end: 20190908
  12. ACETAMINOPHEN 650MG TABLET [Concomitant]
     Dates: start: 20190906, end: 20190908
  13. CEFTRIAXONE 1GM IV [Concomitant]
     Dates: start: 20190906, end: 20190906
  14. ASPIRIN 81MG TABLET [Concomitant]
     Dates: start: 20190906, end: 20190908

REACTIONS (1)
  - Hypotension [None]

NARRATIVE: CASE EVENT DATE: 20190907
